FAERS Safety Report 17929673 (Version 6)
Quarter: 2020Q4

REPORT INFORMATION
  Report Type: Spontaneous
  Country: US (occurrence: US)
  Receive Date: 20200623
  Receipt Date: 20201214
  Transmission Date: 20210113
  Serious: No
  Sender: FDA-Public Use
  Company Number: US-PFIZER INC-2020240069

PATIENT
  Age: 68 Year
  Sex: Male
  Weight: 105.23 kg

DRUGS (4)
  1. INLYTA [Suspect]
     Active Substance: AXITINIB
     Indication: RENAL CANCER METASTATIC
     Dosage: 5 MG, 2X/DAY (9AM AND 9:30PM)
     Route: 048
     Dates: start: 20200601
  2. INLYTA [Suspect]
     Active Substance: AXITINIB
     Dosage: 1 MG
  3. INLYTA [Suspect]
     Active Substance: AXITINIB
     Dosage: 5 MG, 2X/DAY
     Route: 048
  4. INLYTA [Suspect]
     Active Substance: AXITINIB
     Dosage: UNK
     Route: 048
     Dates: end: 2020

REACTIONS (13)
  - Weight decreased [Unknown]
  - Alopecia [Unknown]
  - Pain in extremity [Unknown]
  - Skin fissures [Unknown]
  - Decreased appetite [Unknown]
  - Limb mass [Not Recovered/Not Resolved]
  - Skin irritation [Not Recovered/Not Resolved]
  - Tinea cruris [Unknown]
  - Memory impairment [Not Recovered/Not Resolved]
  - Dry skin [Not Recovered/Not Resolved]
  - Skin exfoliation [Unknown]
  - Pain [Unknown]
  - Pruritus [Not Recovered/Not Resolved]

NARRATIVE: CASE EVENT DATE: 2020
